FAERS Safety Report 6021262-3 (Version None)
Quarter: 2008Q4

REPORT INFORMATION
  Report Type: 
  Country: None (occurrence: None)
  Receive Date: 20081222
  Receipt Date: 20081211
  Transmission Date: 20090506
  Serious: Yes (Hospitalization)
  Sender: FDA-Public Use
  Company Number: 2008-04695

PATIENT
  Age: 57 Year
  Sex: Male
  Weight: 125.4 kg

DRUGS (2)
  1. VELCADE [Suspect]
     Indication: MULTIPLE MYELOMA
     Dosage: 3.2 MG
     Dates: start: 20081006
  2. DOXORUBICIN HCL [Suspect]
     Indication: MULTIPLE MYELOMA
     Dosage: 72 MG
     Dates: start: 20081006

REACTIONS (1)
  - CHEST DISCOMFORT [None]
